FAERS Safety Report 7594074-7 (Version None)
Quarter: 2011Q3

REPORT INFORMATION
  Report Type: 
  Country: None (occurrence: None)
  Receive Date: 20110706
  Receipt Date: 20110627
  Transmission Date: 20111222
  Serious: Yes (Death, Other)
  Sender: FDA-Public Use
  Company Number: JP-CELGENEUS-087-50794-11060951

PATIENT
  Age: 73 Year
  Sex: Male

DRUGS (4)
  1. VIDAZA [Suspect]
     Dosage: 75 MILLIGRAM/SQ. METER
     Route: 058
     Dates: start: 20110413, end: 20110419
  2. PANTOSIN [Concomitant]
     Dosage: 1 GRAM
     Route: 048
     Dates: start: 20110413, end: 20110526
  3. NEUPOGEN [Concomitant]
     Route: 065
  4. MAGMITT [Concomitant]
     Dosage: 1000 MILLIGRAM
     Route: 048
     Dates: start: 20110413, end: 20110526

REACTIONS (4)
  - GINGIVAL BLEEDING [None]
  - SEPSIS [None]
  - PULMONARY HAEMORRHAGE [None]
  - BACK PAIN [None]
